FAERS Safety Report 9213235 (Version 3)
Quarter: 2014Q3

REPORT INFORMATION
  Report Type: Spontaneous
  Country: IN (occurrence: IN)
  Receive Date: 20130405
  Receipt Date: 20140905
  Transmission Date: 20150326
  Serious: Yes (Other)
  Sender: FDA-Public Use
  Company Number: IN-JNJFOC-20130317210

PATIENT

DRUGS (2)
  1. DOXORUBICIN [Suspect]
     Active Substance: DOXORUBICIN
     Indication: BREAST CANCER
     Route: 042
  2. RADIOTHERAPY [Suspect]
     Active Substance: RADIATION THERAPY
     Indication: BREAST CANCER
     Route: 065

REACTIONS (2)
  - Ejection fraction decreased [Unknown]
  - Electrocardiogram repolarisation abnormality [Unknown]
